FAERS Safety Report 8361118-4 (Version None)
Quarter: 2012Q2

REPORT INFORMATION
  Report Type: 
  Country: None (occurrence: None)
  Receive Date: 20120515
  Receipt Date: 20120502
  Transmission Date: 20120825
  Serious: Yes (Hospitalization, Other)
  Sender: FDA-Public Use
  Company Number: US-ROCHE-1061998

PATIENT
  Age: 60 Year
  Sex: Female

DRUGS (5)
  1. PACLITAXEL [Suspect]
     Indication: BREAST CANCER
     Route: 042
     Dates: start: 20090309
  2. HERCEPTIN [Suspect]
     Dosage: FOR 11 WEEKS
     Route: 042
  3. HERCEPTIN [Suspect]
     Indication: BREAST CANCER
     Dosage: LOADING DOSE ON DAY 1 OF WEEK 1
     Route: 042
     Dates: start: 20090309
  4. HERCEPTIN [Suspect]
     Dosage: CUMALATIVE DOSE: 507 MG
     Route: 042
     Dates: start: 20090309, end: 20090713
  5. LAPATINIB [Suspect]
     Indication: BREAST CANCER
     Route: 048
     Dates: start: 20090309, end: 20090712

REACTIONS (3)
  - PALMAR-PLANTAR ERYTHRODYSAESTHESIA SYNDROME [None]
  - PERIPHERAL SENSORY NEUROPATHY [None]
  - LUNG INFILTRATION [None]
